FAERS Safety Report 9030879 (Version 5)
Quarter: 2015Q1

REPORT INFORMATION
  Report Type: Report from Study
  Country: US (occurrence: US)
  Receive Date: 20130123
  Receipt Date: 20150213
  Transmission Date: 20150721
  Serious: Yes (Other)
  Sender: FDA-Public Use
  Company Number: US-ROCHE-1181989

PATIENT

DRUGS (6)
  1. GS-1101 [Suspect]
     Active Substance: IDELALISIB
     Indication: NON-HODGKIN^S LYMPHOMA UNSPECIFIED HISTOLOGY INDOLENT
     Dosage: 100 MG/DOSE
     Route: 065
  2. BENDAMUSTINE [Suspect]
     Active Substance: BENDAMUSTINE
     Dosage: 90 MG/M SUP 2 GIVEN ON DAYS 1 AND 2 OF EACH CYCLE FOR 6 CYCLES
     Route: 065
  3. RITUXIMAB [Suspect]
     Active Substance: RITUXIMAB
     Indication: NON-HODGKIN^S LYMPHOMA UNSPECIFIED HISTOLOGY INDOLENT
     Dosage: 375 MG/M SUP 2 GIVEN WEEKLY FOR 8 DOSES
     Route: 042
  4. RITUXIMAB [Suspect]
     Active Substance: RITUXIMAB
     Dosage: 375 MG/M SUP 2 , ON DAY 1 OF EACH CYCLE FOR 6 CYCLES
     Route: 042
  5. GS-1101 [Suspect]
     Active Substance: IDELALISIB
     Dosage: 150 MG/DOSE
     Route: 065
  6. BENDAMUSTINE [Suspect]
     Active Substance: BENDAMUSTINE
     Indication: NON-HODGKIN^S LYMPHOMA UNSPECIFIED HISTOLOGY INDOLENT
     Dosage: 90 MG/M SUP 2 GIVEN ON DAYS 1 AND 2 OF EACH CYCLE FOR 6 CYCLES
     Route: 065

REACTIONS (16)
  - Transaminases increased [Unknown]
  - Febrile neutropenia [Unknown]
  - Upper respiratory tract infection [Unknown]
  - Pneumonitis [Unknown]
  - Alanine aminotransferase increased [Unknown]
  - Aspartate aminotransferase increased [Unknown]
  - Neutropenia [Unknown]
  - Diarrhoea [Unknown]
  - Lymphopenia [Unknown]
  - Fatigue [Unknown]
  - Anaemia [Unknown]
  - Infection [Unknown]
  - Pneumonia [Unknown]
  - Thrombocytopenia [Unknown]
  - Rash [Unknown]
  - Pyrexia [Unknown]
